FAERS Safety Report 7733570-6 (Version None)
Quarter: 2011Q3

REPORT INFORMATION
  Report Type: 
  Country: None (occurrence: None)
  Receive Date: 20110907
  Receipt Date: 20110824
  Transmission Date: 20111222
  Serious: Yes (Hospitalization, Other)
  Sender: FDA-Public Use
  Company Number: US-ELI_LILLY_AND_COMPANY-US201108008342

PATIENT
  Age: 55 Year
  Sex: Female

DRUGS (2)
  1. PROTON PUMP INHIBITORS [Concomitant]
  2. CYMBALTA [Suspect]
     Dosage: 60 MG, UNKNOWN

REACTIONS (1)
  - COLITIS MICROSCOPIC [None]
